FAERS Safety Report 6955424-5 (Version None)
Quarter: 2010Q3

REPORT INFORMATION
  Report Type: 
  Country: None (occurrence: None)
  Receive Date: 20100830
  Receipt Date: 20100820
  Transmission Date: 20110219
  Serious: Yes (Hospitalization)
  Sender: FDA-Public Use
  Company Number: US-AMGEN-QUU391497

PATIENT
  Sex: Female

DRUGS (2)
  1. ENBREL [Suspect]
     Indication: RHEUMATOID ARTHRITIS
     Route: 058
     Dates: start: 20030101
  2. LEFLUNOMIDE [Concomitant]
     Route: 048

REACTIONS (4)
  - EAR INFECTION [None]
  - LABORATORY TEST ABNORMAL [None]
  - LABOUR COMPLICATION [None]
  - MIDDLE EAR EFFUSION [None]
